FAERS Safety Report 9172781 (Version 1)
Quarter: 2012Q4

REPORT INFORMATION
  Report Type: 
  Country: DE (occurrence: FR)
  Receive Date: 20120911
  Receipt Date: 20120911
  Transmission Date: 20130627
  Serious: Yes (Hospitalization)
  Sender: FDA-Public Use
  Company Number: FR-FRI-1000038411

PATIENT
  Age: 92 None
  Sex: Male

DRUGS (9)
  1. MEMANTINE [Suspect]
     Dosage: 20 mg
     Route: 048
  2. VESICARE [Suspect]
     Dosage: 10 mg
     Route: 048
     Dates: end: 201206
  3. AMLODIPINE [Concomitant]
  4. PLAVIX [Concomitant]
  5. PERMIXON [Concomitant]
  6. CRESTOR [Concomitant]
  7. LACTULOSE [Concomitant]
  8. EFFERALGAN [Concomitant]
  9. ADANCOR [Concomitant]

REACTIONS (1)
  - Anticholinergic syndrome [Recovered/Resolved]
